FAERS Safety Report 20579915 (Version 2)
Quarter: 2022Q1

REPORT INFORMATION
  Report Type: Spontaneous
  Country: PL (occurrence: PL)
  Receive Date: 20220310
  Receipt Date: 20220325
  Transmission Date: 20220424
  Serious: Yes (Death, Hospitalization)
  Sender: FDA-Public Use
  Company Number: PL-TEVA-2022-PL-2014149

PATIENT
  Age: 34 Year
  Sex: Male

DRUGS (4)
  1. OLANZAPINE [Suspect]
     Active Substance: OLANZAPINE
     Indication: Schizophrenia
     Route: 048
  2. OLANZAPINE [Suspect]
     Active Substance: OLANZAPINE
     Dosage: ON TWO CONSECUTIVE DAYS
     Route: 048
  3. OLANZAPINE [Suspect]
     Active Substance: OLANZAPINE
     Dosage: ORALLY DISINTEGRATING TABLETS
     Route: 048
  4. OLANZAPINE [Suspect]
     Active Substance: OLANZAPINE
     Dosage: 20 MILLIGRAM DAILY; ORALLY DISINTEGRATING TABLETS
     Route: 048

REACTIONS (3)
  - Pulmonary embolism [Fatal]
  - Cardiac arrest [Fatal]
  - Pulseless electrical activity [Fatal]
